FAERS Safety Report 18184809 (Version 10)
Quarter: 2024Q4

REPORT INFORMATION
  Report Type: Report from Study
  Country: US (occurrence: US)
  Receive Date: 20200824
  Receipt Date: 20241111
  Transmission Date: 20250115
  Serious: Yes (Hospitalization, Other)
  Sender: TAKEDA
  Company Number: US-SHIRE-US202026643

PATIENT
  Age: 63 Year
  Sex: Female
  Weight: 63 kg

DRUGS (15)
  1. TEDUGLUTIDE [Suspect]
     Active Substance: TEDUGLUTIDE
     Indication: Short-bowel syndrome
     Dosage: UNK UNK, QD
     Dates: start: 20191018
  2. TEDUGLUTIDE [Suspect]
     Active Substance: TEDUGLUTIDE
     Indication: Malabsorption
     Dosage: 1.25 MILLIGRAM, QOD
  3. TEDUGLUTIDE [Suspect]
     Active Substance: TEDUGLUTIDE
     Indication: Stasis syndrome
     Dosage: 1.6 MILLIGRAM, QD
  4. TEDUGLUTIDE [Suspect]
     Active Substance: TEDUGLUTIDE
     Dosage: 1.6 MILLIGRAM, QD
  5. TEDUGLUTIDE [Suspect]
     Active Substance: TEDUGLUTIDE
     Dosage: 1.6 MILLIGRAM, QD
  6. TEDUGLUTIDE [Suspect]
     Active Substance: TEDUGLUTIDE
     Dosage: UNK
  7. TEDUGLUTIDE [Suspect]
     Active Substance: TEDUGLUTIDE
     Dosage: 1.6 MILLIGRAM, QD
  8. TEDUGLUTIDE [Suspect]
     Active Substance: TEDUGLUTIDE
     Dosage: 1.6 MILLIGRAM, QD
  9. DICYCLOMINE HYDROCHLORIDE [Concomitant]
     Active Substance: DICYCLOMINE HYDROCHLORIDE
     Dosage: UNK
  10. LOMOTIL [Concomitant]
     Active Substance: ATROPINE SULFATE\DIPHENOXYLATE HYDROCHLORIDE
     Dosage: UNK
  11. SODIUM BICARBONATE [Concomitant]
     Active Substance: SODIUM BICARBONATE
     Dosage: UNK
  12. EFFEXOR XR [Concomitant]
     Active Substance: VENLAFAXINE HYDROCHLORIDE
     Dosage: UNK
  13. CODEINE SULFATE [Concomitant]
     Active Substance: CODEINE SULFATE
     Dosage: UNK
  14. PANTOPRAZOLE SODIUM [Concomitant]
     Active Substance: PANTOPRAZOLE SODIUM
     Dosage: UNK
  15. CALCITRIOL [Concomitant]
     Active Substance: CALCITRIOL
     Dosage: UNK

REACTIONS (14)
  - Crohn^s disease [Unknown]
  - Dehydration [Unknown]
  - Stoma complication [Not Recovered/Not Resolved]
  - Illness [Unknown]
  - Weight increased [Unknown]
  - Depression [Unknown]
  - Rash vesicular [Unknown]
  - Herpes zoster [Unknown]
  - Product use issue [Recovered/Resolved]
  - Product packaging difficult to open [Unknown]
  - Device difficult to use [Unknown]
  - Stress [Unknown]
  - Rash [Unknown]
  - Injection site reaction [Unknown]

NARRATIVE: CASE EVENT DATE: 20231127
